FAERS Safety Report 6047136-X (Version None)
Quarter: 2009Q1

REPORT INFORMATION
  Report Type: 
  Country: None (occurrence: None)
  Receive Date: 20090122
  Receipt Date: 20090117
  Transmission Date: 20090719
  Serious: Yes (Other)
  Sender: FDA-Public Use
  Company Number: PHHY2009MX02031

PATIENT
  Age: 64 Year
  Sex: Male

DRUGS (5)
  1. ACLASTA [Suspect]
     Indication: OSTEOPOROSIS
     Dosage: 1 INJECTION (5 MG/100ML)/YEAR
     Dates: start: 20080301
  2. DOLOCAM-PLUS [Concomitant]
  3. SERC [Concomitant]
  4. ZALDIAR [Concomitant]
  5. METICORTEN [Concomitant]

REACTIONS (3)
  - BONE FISSURE [None]
  - BONE PAIN [None]
  - IMPAIRED WORK ABILITY [None]
